FAERS Safety Report 5016853-2 (Version None)
Quarter: 2006Q2

REPORT INFORMATION
  Report Type: 
  Country: None (occurrence: None)
  Receive Date: 20060526
  Receipt Date: 20060517
  Transmission Date: 20061013
  Serious: Yes (Hospitalization, Disabling)
  Sender: FDA-Public Use
  Company Number: CZ200605003671

PATIENT
  Age: 44 Year
  Sex: Male

DRUGS (5)
  1. ZYPREXA [Suspect]
     Indication: BIPOLAR DISORDER
     Dosage: 15; 10 MG, DAILY (1/D), ORAL
     Route: 048
     Dates: start: 20050317
  2. ZYPREXA [Suspect]
     Indication: BIPOLAR DISORDER
     Dosage: 15; 10 MG, DAILY (1/D), ORAL
     Route: 048
     Dates: start: 20050317
  3. LAMOTRIGINE [Concomitant]
  4. PROMETHAZINE [Concomitant]
  5. PLEGOMAZIN (CHLORPROMAZINE HYDROCHLORIDE) [Concomitant]

REACTIONS (4)
  - ALCOHOLISM [None]
  - ASPIRATION [None]
  - LOSS OF CONSCIOUSNESS [None]
  - VOMITING [None]
